FAERS Safety Report 16771956 (Version 10)
Quarter: 2020Q1

REPORT INFORMATION
  Report Type: Report from Study
  Country: US (occurrence: US)
  Receive Date: 20190904
  Receipt Date: 20200110
  Transmission Date: 20200409
  Serious: Yes (Life-Threatening, Other)
  Sender: FDA-Public Use
  Company Number: US-ASTRAZENECA-2018SF10564

PATIENT
  Age: 23012 Day
  Sex: Female

DRUGS (4)
  1. SYMBICORT [Suspect]
     Active Substance: BUDESONIDE\FORMOTEROL FUMARATE DIHYDRATE
     Indication: DYSPNOEA
     Dosage: TWO TIMES A DAY
     Route: 055
  2. IMFINZI [Suspect]
     Active Substance: DURVALUMAB
     Indication: LUNG NEOPLASM MALIGNANT
     Route: 042
     Dates: start: 20180604, end: 20190327
  3. IMFINZI [Suspect]
     Active Substance: DURVALUMAB
     Indication: LUNG NEOPLASM MALIGNANT
     Route: 042
     Dates: end: 201904
  4. SYNTHROID [Concomitant]
     Active Substance: LEVOTHYROXINE SODIUM
     Dates: start: 20190306

REACTIONS (60)
  - Cough [Unknown]
  - Hypotension [Unknown]
  - Contusion [Not Recovered/Not Resolved]
  - Skin mass [Unknown]
  - Urine odour abnormal [Unknown]
  - Pulmonary fibrosis [Unknown]
  - Pulmonary toxicity [Unknown]
  - Pruritus [Recovered/Resolved]
  - Amnesia [Unknown]
  - Weight increased [Recovered/Resolved]
  - Rash macular [Not Recovered/Not Resolved]
  - Rash [Recovered/Resolved]
  - Back pain [Not Recovered/Not Resolved]
  - Peripheral swelling [Unknown]
  - Nephrolithiasis [Unknown]
  - Eye swelling [Recovering/Resolving]
  - Eye pruritus [Recovering/Resolving]
  - Procedural pain [Unknown]
  - Temperature intolerance [Unknown]
  - Increased appetite [Unknown]
  - Taste disorder [Unknown]
  - Thyroid function test abnormal [Unknown]
  - Arthralgia [Not Recovered/Not Resolved]
  - Dyspnoea [Not Recovered/Not Resolved]
  - Nail growth abnormal [Unknown]
  - Food craving [Unknown]
  - Nausea [Unknown]
  - Rash pruritic [Not Recovered/Not Resolved]
  - Arthropathy [Unknown]
  - Joint swelling [Not Recovered/Not Resolved]
  - Malaise [Recovering/Resolving]
  - Eye irritation [Recovered/Resolved]
  - Initial insomnia [Recovering/Resolving]
  - Weight decreased [Recovered/Resolved]
  - Purpura [Unknown]
  - Gingival bleeding [Unknown]
  - Bursitis [Unknown]
  - Rosacea [Unknown]
  - Product dose omission [Unknown]
  - Salivary hypersecretion [Unknown]
  - Neck pain [Not Recovered/Not Resolved]
  - Haemorrhage [Unknown]
  - Gastroenteritis viral [Recovered/Resolved]
  - Tooth disorder [Unknown]
  - Constipation [Unknown]
  - Abnormal faeces [Unknown]
  - Sneezing [Unknown]
  - Rhinorrhoea [Unknown]
  - Chronic obstructive pulmonary disease [Not Recovered/Not Resolved]
  - Drug ineffective [Unknown]
  - Rash erythematous [Not Recovered/Not Resolved]
  - Fatigue [Not Recovered/Not Resolved]
  - Limb mass [Unknown]
  - Stress [Unknown]
  - Onychoclasis [Unknown]
  - Pain in extremity [Unknown]
  - Petechiae [Unknown]
  - Feeling abnormal [Recovering/Resolving]
  - Eyelids pruritus [Recovered/Resolved]
  - Blister [Unknown]

NARRATIVE: CASE EVENT DATE: 20180802
